FAERS Safety Report 14209229 (Version 2)
Quarter: 2017Q4

REPORT INFORMATION
  Report Type: Spontaneous
  Country: IT (occurrence: IT)
  Receive Date: 20171121
  Receipt Date: 20171122
  Transmission Date: 20180321
  Serious: Yes (Other)
  Sender: FDA-Public Use
  Company Number: IT-PFIZER INC-2017498195

PATIENT
  Age: 66 Year
  Sex: Male

DRUGS (2)
  1. GEMCITABINE HYDROCHLORIDE. [Suspect]
     Active Substance: GEMCITABINE HYDROCHLORIDE
     Indication: MYXOFIBROSARCOMA
     Dosage: 900 MG/M2, DAYS 1-8
  2. TAXOTERE [Suspect]
     Active Substance: DOCETAXEL
     Indication: MYXOFIBROSARCOMA
     Dosage: 80 MG/M2, EVERY 3 WEEKS FOR 3 CYCLES
     Route: 041

REACTIONS (4)
  - Intentional product use issue [Unknown]
  - Dysgeusia [Unknown]
  - Erythema [Unknown]
  - Mucosal inflammation [Unknown]
